FAERS Safety Report 7221403-6 (Version None)
Quarter: 2011Q1

REPORT INFORMATION
  Report Type: 
  Country: None (occurrence: None)
  Receive Date: 20110112
  Receipt Date: 20110107
  Transmission Date: 20110831
  Serious: Yes (Hospitalization)
  Sender: FDA-Public Use
  Company Number: ES-MEDIMMUNE-MEDI-0012162

PATIENT
  Age: 3 Month
  Sex: Male
  Weight: 4.95 kg

DRUGS (3)
  1. PREVENAR 13 [Concomitant]
     Indication: IMMUNISATION
     Route: 030
     Dates: start: 20101019, end: 20101118
  2. SYNAGIS [Suspect]
     Indication: PROPHYLAXIS
     Dates: start: 20101118, end: 20101118
  3. INFANRIX [Concomitant]
     Indication: IMMUNISATION
     Dates: start: 20101118, end: 20101118

REACTIONS (2)
  - GASTROOESOPHAGEAL REFLUX DISEASE [None]
  - BRONCHIAL HYPERREACTIVITY [None]
